FAERS Safety Report 8402037 (Version 2)
Quarter: 2013Q2

REPORT INFORMATION
  Report Type: Spontaneous
  Country: US (occurrence: None)
  Receive Date: 20111227
  Receipt Date: 20120426
  Transmission Date: 20140414
  Serious: Yes (Other)
  Sender: FDA-Public Use
  Company Number: PHEH2011US04653

PATIENT
  Age: 37 Year
  Sex: Female

DRUGS (1)
  1. GILENYA [Suspect]
     Dosage: 0.5 MG, DAILY, ORAL
     Route: 048
     Dates: start: 20110816

REACTIONS (6)
  - BLOOD PRESSURE FLUCTUATION [None]
  - VOMITING [None]
  - DIARRHOEA [None]
  - Alopecia [None]
  - Headache [None]
  - Dizziness [None]
